FAERS Safety Report 7689318-7 (Version None)
Quarter: 2011Q3

REPORT INFORMATION
  Report Type: 
  Country: None (occurrence: None)
  Receive Date: 20110817
  Receipt Date: 20110808
  Transmission Date: 20111222
  Serious: Yes (Other)
  Sender: FDA-Public Use
  Company Number: US-ASTRAZENECA-2011SE47390

PATIENT
  Age: 63 Year
  Sex: Female
  Weight: 81.6 kg

DRUGS (3)
  1. KOMBIGLYZE XR [Concomitant]
     Indication: DIABETES MELLITUS
  2. CRESTOR [Suspect]
     Route: 048
  3. CRESTOR [Suspect]
     Route: 048

REACTIONS (4)
  - HAEMORRHAGE [None]
  - BLOOD CHOLESTEROL INCREASED [None]
  - IMPAIRED WORK ABILITY [None]
  - VISUAL IMPAIRMENT [None]
